FAERS Safety Report 8581823-4 (Version None)
Quarter: 2012Q3

REPORT INFORMATION
  Report Type: 
  Country: None (occurrence: None)
  Receive Date: 20120809
  Receipt Date: 20120803
  Transmission Date: 20120928
  Serious: Yes (Other)
  Sender: FDA-Public Use
  Company Number: US-JNJFOC-20120203285

PATIENT
  Sex: Male

DRUGS (2)
  1. EVICEL [Suspect]
     Indication: PTERYGIUM
     Route: 065
  2. ALL OTHER THERAPEUTIC PRODUCT [Concomitant]
     Indication: PTERYGIUM
     Route: 065

REACTIONS (2)
  - WOUND DEHISCENCE [None]
  - OFF LABEL USE [None]
